FAERS Safety Report 5794751-4 (Version None)
Quarter: 2008Q2

REPORT INFORMATION
  Report Type: 
  Country: None (occurrence: None)
  Receive Date: 20080630
  Receipt Date: 20080618
  Transmission Date: 20081010
  Serious: Yes (Hospitalization)
  Sender: FDA-Public Use
  Company Number: DE-AMGEN-UK288299

PATIENT
  Sex: Female

DRUGS (4)
  1. PANITUMUMAB [Suspect]
     Indication: COLORECTAL CANCER
     Route: 042
     Dates: start: 20070827
  2. LEUCOVORIN CALCIUM [Concomitant]
     Route: 042
  3. IRINOTECAN HCL [Concomitant]
     Route: 042
  4. FLUORO-URACIL [Concomitant]
     Route: 042

REACTIONS (1)
  - DERMATOSIS [None]
